FAERS Safety Report 15547390 (Version 1)
Quarter: 2018Q4

REPORT INFORMATION
  Report Type: Spontaneous
  Country: FR (occurrence: FR)
  Receive Date: 20181024
  Receipt Date: 20181024
  Transmission Date: 20190205
  Serious: Yes (Other)
  Sender: FDA-Public Use
  Company Number: FR-JNJFOC-20180627638

PATIENT
  Age: 30 Year
  Sex: Female

DRUGS (3)
  1. KEPPRA [Suspect]
     Active Substance: LEVETIRACETAM
     Indication: EPILEPSY
     Dosage: 500 MG, 2X/DAY
     Route: 065
  2. URBANYL [Suspect]
     Active Substance: CLOBAZAM
     Indication: EPILEPSY
     Dosage: 50 MG, 2X/DAY
     Route: 065
     Dates: start: 20170516
  3. EPITOMAX [Suspect]
     Active Substance: TOPIRAMATE
     Indication: EPILEPSY
     Route: 048
     Dates: end: 20170516

REACTIONS (2)
  - Exposure during pregnancy [Recovered/Resolved]
  - Postpartum haemorrhage [Unknown]

NARRATIVE: CASE EVENT DATE: 201704
